FAERS Safety Report 23516789 (Version 1)
Quarter: 2024Q1

REPORT INFORMATION
  Report Type: Spontaneous
  Country: US (occurrence: None)
  Receive Date: 20240212
  Receipt Date: 20240212
  Transmission Date: 20240409
  Serious: Yes (Other)
  Sender: FDA-Public Use
  Company Number: None

PATIENT
  Age: 75 Year
  Sex: Male
  Weight: 105.75 kg

DRUGS (12)
  1. ENTYVIO [Suspect]
     Active Substance: VEDOLIZUMAB
     Dosage: 1 INJECTION EVERY TWO WEEKS SUBCUTANEOUS ?
     Route: 058
     Dates: start: 20230614
  2. LANTUS [Concomitant]
     Active Substance: INSULIN GLARGINE
  3. TRULICITY [Concomitant]
     Active Substance: DULAGLUTIDE
  4. Atrovistatin [Concomitant]
  5. Lisinopril/HTZ [Concomitant]
  6. PANTOPRAZOLE [Concomitant]
     Active Substance: PANTOPRAZOLE
  7. Hydroxiclorquin [Concomitant]
  8. CREON [Concomitant]
     Active Substance: PANCRELIPASE AMYLASE\PANCRELIPASE LIPASE\PANCRELIPASE PROTEASE
  9. allopuron [Concomitant]
  10. VITAMIN D [Concomitant]
     Active Substance: VITAMIN D NOS
  11. VITAMIN B12 [Concomitant]
     Active Substance: CYANOCOBALAMIN
  12. IRON [Concomitant]
     Active Substance: IRON

REACTIONS (2)
  - Peripheral swelling [None]
  - Adverse drug reaction [None]

NARRATIVE: CASE EVENT DATE: 20230614
